FAERS Safety Report 6849874-5 (Version None)
Quarter: 2010Q3

REPORT INFORMATION
  Report Type: 
  Country: None (occurrence: None)
  Receive Date: 20100716
  Receipt Date: 20071004
  Transmission Date: 20110219
  Serious: No
  Sender: FDA-Public Use
  Company Number: US-PFIZER INC-2007084820

PATIENT
  Sex: Female
  Weight: 77.272 kg

DRUGS (10)
  1. CHANTIX [Suspect]
     Indication: SMOKING CESSATION THERAPY
     Route: 048
     Dates: start: 20071001
  2. ANTITHROMBOTIC AGENTS [Concomitant]
  3. ATIVAN [Concomitant]
  4. BENZTROPINE MESYLATE [Concomitant]
  5. VYTORIN [Concomitant]
  6. FLUPHENAZINE [Concomitant]
  7. NORTRIPTYLINE [Concomitant]
  8. LORAZEPAM [Concomitant]
  9. TOPROL-XL [Concomitant]
  10. GLIMEPIRIDE [Concomitant]

REACTIONS (3)
  - BLOOD GLUCOSE DECREASED [None]
  - FEELING ABNORMAL [None]
  - INCORRECT DOSE ADMINISTERED [None]
